FAERS Safety Report 21605073 (Version 1)
Quarter: 2022Q4

REPORT INFORMATION
  Report Type: Spontaneous
  Country: US (occurrence: None)
  Receive Date: 20221115
  Receipt Date: 20221115
  Transmission Date: 20230112
  Serious: No
  Sender: FDA-Public Use
  Company Number: None

PATIENT
  Sex: Female
  Weight: 54.43 kg

DRUGS (9)
  1. RETEVMO [Suspect]
     Active Substance: SELPERCATINIB
     Indication: Lung carcinoma cell type unspecified stage 0
     Dosage: FREQUENCY : TWICE A DAY;?
     Route: 048
  2. HYDROCORTISONE [Concomitant]
  3. FENOFIBRATE [Concomitant]
     Active Substance: FENOFIBRATE
  4. CITALOPRAM [Concomitant]
     Active Substance: CITALOPRAM HYDROBROMIDE
  5. VITAMINC [Concomitant]
  6. VITAMIN E [Concomitant]
     Active Substance: .ALPHA.-TOCOPHEROL
  7. RELEVMO [Concomitant]
  8. VITAMINS [Concomitant]
     Active Substance: VITAMINS
  9. DULOXETINE [Concomitant]
     Active Substance: DULOXETINE

REACTIONS (1)
  - Dyspnoea [None]
